FAERS Safety Report 5193025-2 (Version None)
Quarter: 2006Q4

REPORT INFORMATION
  Report Type: 
  Country: None (occurrence: None)
  Receive Date: 20061228
  Receipt Date: 20060301
  Transmission Date: 20070319
  Serious: No
  Sender: FDA-Public Use
  Company Number: US-GLAXOSMITHKLINE-A0595710A

PATIENT
  Age: 72 Year
  Sex: Male

DRUGS (2)
  1. AVODART [Suspect]
     Indication: BENIGN PROSTATIC HYPERPLASIA
     Dosage: .5MG PER DAY
     Route: 048
     Dates: start: 20050601, end: 20060226
  2. NO CONCURRENT MEDICATION [Concomitant]

REACTIONS (7)
  - BLOOD PRESSURE INCREASED [None]
  - BREAST SWELLING [None]
  - ERECTILE DYSFUNCTION [None]
  - HYPERTRIGLYCERIDAEMIA [None]
  - LIBIDO DECREASED [None]
  - SWELLING [None]
  - WEIGHT INCREASED [None]
